FAERS Safety Report 9745857 (Version 1)
Quarter: 2013Q4

REPORT INFORMATION
  Report Type: Spontaneous
  Country: FR (occurrence: FR)
  Receive Date: 20131211
  Receipt Date: 20131211
  Transmission Date: 20140711
  Serious: Yes (Other)
  Sender: FDA-Public Use
  Company Number: FR-NAPPMUNDI-GBR-2013-0016489

PATIENT
  Age: 36 Year
  Sex: Male

DRUGS (19)
  1. OXYCONTIN LP, COMPRIME PELLICULE A LIBERATION PROLONGEE [Suspect]
     Indication: BACK PAIN
     Dosage: 240 MG, DAILY
     Route: 048
     Dates: start: 20111117
  2. OXYCONTIN LP, COMPRIME PELLICULE A LIBERATION PROLONGEE [Suspect]
     Dosage: 160 MG, DAILY
     Route: 048
     Dates: start: 20110927, end: 20111117
  3. OXYCONTIN LP, COMPRIME PELLICULE A LIBERATION PROLONGEE [Suspect]
     Dosage: 120 MG, DAILY
     Route: 048
     Dates: start: 201108, end: 20110927
  4. OXYCONTIN LP, COMPRIME PELLICULE A LIBERATION PROLONGEE [Suspect]
     Dosage: 80 MG, DAILY
     Route: 048
     Dates: start: 201108
  5. OXYCONTIN LP, COMPRIME PELLICULE A LIBERATION PROLONGEE [Suspect]
     Dosage: 60 MG, DAILY
     Route: 048
     Dates: start: 201107
  6. OXYCONTIN LP, COMPRIME PELLICULE A LIBERATION PROLONGEE [Suspect]
     Dosage: 40 MG, DAILY
     Route: 048
     Dates: start: 201106
  7. ACTISKENAN [Concomitant]
     Dosage: 40 MG, DAILY
     Dates: start: 201103
  8. ACTISKENAN [Concomitant]
     Dosage: UNK
     Dates: start: 201012, end: 201102
  9. SKENAN [Concomitant]
     Dosage: 30 MG, BID
     Dates: start: 201103
  10. SKENAN [Concomitant]
     Dosage: 30 MG, DAILY
     Dates: start: 201010, end: 201102
  11. DUROGESIC [Concomitant]
     Dosage: 50 MCG, UNK
     Dates: start: 20110927, end: 20111117
  12. DUROGESIC [Concomitant]
     Dosage: 25 MCG, UNK
     Dates: start: 201102, end: 201103
  13. LYRICA [Concomitant]
     Dosage: 200 MG, 2 DF DAILY
     Dates: start: 20110927
  14. LEXOMIL [Concomitant]
  15. LAROXYL [Concomitant]
  16. BREXIN                             /00500404/ [Concomitant]
     Dosage: 75 MG X 2 DF DAILY
     Dates: start: 201107
  17. STRESAM [Concomitant]
  18. PYOSTACINE [Concomitant]
     Dosage: UNK
     Dates: start: 201108
  19. DALACINE                           /00166003/ [Concomitant]
     Dosage: UNK
     Dates: start: 201108

REACTIONS (5)
  - Drug dependence [Unknown]
  - Medication residue present [Unknown]
  - Off label use [Unknown]
  - Drug ineffective [Unknown]
  - Constipation [Unknown]
